FAERS Safety Report 5511992-1 (Version None)
Quarter: 2007Q4

REPORT INFORMATION
  Report Type: 
  Country: None (occurrence: None)
  Receive Date: 20071109
  Receipt Date: 20071101
  Transmission Date: 20080405
  Serious: Yes (Death, Hospitalization)
  Sender: FDA-Public Use
  Company Number: US-MERCK-0711USA00541

PATIENT
  Age: 23 Year
  Sex: Male

DRUGS (2)
  1. DECADRON [Suspect]
     Indication: LEUKAEMIA
     Route: 048
  2. VINCRISTINE SULFATE [Suspect]
     Indication: LEUKAEMIA
     Route: 065

REACTIONS (2)
  - EMBOLISM [None]
  - FUNGAL INFECTION [None]
